FAERS Safety Report 6520009-1 (Version None)
Quarter: 2009Q4

REPORT INFORMATION
  Report Type: 
  Country: None (occurrence: None)
  Receive Date: 20091229
  Receipt Date: 20091225
  Transmission Date: 20100525
  Serious: Yes (Death, Other)
  Sender: FDA-Public Use
  Company Number: JP-JNJFOC-20091205641

PATIENT
  Age: 71 Year
  Sex: Male

DRUGS (2)
  1. DUROTEP MT [Suspect]
     Indication: CANCER PAIN
     Route: 062
  2. CEFOTAX [Concomitant]
     Route: 065

REACTIONS (2)
  - BLOOD BILIRUBIN INCREASED [None]
  - DEATH [None]
